FAERS Safety Report 8330366-1 (Version None)
Quarter: 2012Q2

REPORT INFORMATION
  Report Type: 
  Country: None (occurrence: None)
  Receive Date: 20120502
  Receipt Date: 20120420
  Transmission Date: 20120825
  Serious: Yes (Hospitalization)
  Sender: FDA-Public Use
  Company Number: DE-BRISTOL-MYERS SQUIBB COMPANY-16467821

PATIENT
  Age: 54 Year
  Sex: Male
  Weight: 76 kg

DRUGS (2)
  1. YERVOY [Suspect]
     Indication: MALIGNANT MELANOMA
     Dosage: THERAPY ON 06FEB12,27FEB12
     Route: 042
     Dates: start: 20120116
  2. PANTOPRAZOLE [Concomitant]
     Indication: PROPHYLAXIS
     Route: 048

REACTIONS (7)
  - MUCOSAL INFLAMMATION [None]
  - DIARRHOEA [None]
  - CONJUNCTIVITIS [None]
  - LYMPHOPENIA [None]
  - RASH PAPULAR [None]
  - HEARING IMPAIRED [None]
  - C-REACTIVE PROTEIN INCREASED [None]
